FAERS Safety Report 8871828 (Version 1)
Quarter: 2012Q4

REPORT INFORMATION
  Report Type: 
  Country: US (occurrence: US)
  Receive Date: 20121026
  Receipt Date: 20121026
  Transmission Date: 20130627
  Serious: No
  Sender: FDA-Public Use
  Company Number: US-AMGEN-USASP2012048808

PATIENT
  Sex: Male

DRUGS (12)
  1. ENBREL [Suspect]
     Indication: PRODUCT USED FOR UNKNOWN INDICATION
     Dosage: 50 mg, qwk
     Route: 058
  2. AMLODIPINE [Concomitant]
     Dosage: 10 mg, UNK
  3. RAMIPRIL [Concomitant]
     Dosage: 1.25 mg, UNK
  4. LIPITOR [Concomitant]
     Dosage: 10 mg, UNK
  5. ATENOLOL [Concomitant]
     Dosage: 100 mg, UNK
  6. FLONASE [Concomitant]
     Dosage: 0.05%
  7. VITAMIN D /00107901/ [Concomitant]
     Dosage: 50000 IU, UNK
  8. CLARITIN                           /00413701/ [Concomitant]
     Dosage: 10 mg, UNK
  9. ASPIRIN [Concomitant]
     Dosage: 325 mg, UNK
  10. FISH OIL [Concomitant]
  11. NIACIN [Concomitant]
     Dosage: 400-100
  12. PLAVIX [Concomitant]
     Dosage: 300 mg, UNK

REACTIONS (1)
  - Drug effect incomplete [Unknown]
